FAERS Safety Report 13439829 (Version 1)
Quarter: 2017Q2

REPORT INFORMATION
  Report Type: Spontaneous
  Country: US (occurrence: US)
  Receive Date: 20170413
  Receipt Date: 20170413
  Transmission Date: 20170830
  Serious: No
  Sender: FDA-Public Use
  Company Number: US-ENDO PHARMACEUTICALS INC-2016SCPR015617

PATIENT

DRUGS (4)
  1. HYDROXYUREA. [Suspect]
     Active Substance: HYDROXYUREA
     Indication: POLYCYTHAEMIA
     Dosage: TWO CAPSULES FOUR DAYS A WEEK; ONE CAPSULE THREE DAYS A WEEK
     Route: 048
  2. HYDROXYUREA. [Suspect]
     Active Substance: HYDROXYUREA
     Dosage: TWO CAPSULES FOUR DAYS A WEEK; ONE CAPSULE THREE DAYS A WEEK
     Route: 048
     Dates: start: 201606
  3. ALLOPURINOL. [Concomitant]
     Active Substance: ALLOPURINOL
     Indication: GOUT
     Dosage: UNK UNK, OD
     Route: 048
  4. ANAGRELIDE. [Concomitant]
     Active Substance: ANAGRELIDE HYDROCHLORIDE
     Indication: PLATELET DISORDER
     Dosage: UNK UNK, OD
     Route: 048

REACTIONS (4)
  - Product use in unapproved indication [Unknown]
  - Lip haemorrhage [Recovering/Resolving]
  - Chapped lips [Recovering/Resolving]
  - Oral discomfort [Recovering/Resolving]

NARRATIVE: CASE EVENT DATE: 201606
